FAERS Safety Report 6157512-2 (Version None)
Quarter: 2009Q2

REPORT INFORMATION
  Report Type: 
  Country: None (occurrence: None)
  Receive Date: 20090416
  Receipt Date: 20090403
  Transmission Date: 20091009
  Serious: Yes (Death, Hospitalization)
  Sender: FDA-Public Use
  Company Number: FR-GENENTECH-280923

PATIENT
  Sex: Male

DRUGS (9)
  1. RITUXIMAB [Suspect]
     Indication: NON-HODGKIN'S LYMPHOMA
     Dosage: 630 MG, QD
     Route: 042
     Dates: start: 20081015
  2. METHOTREXATE [Suspect]
     Indication: NON-HODGKIN'S LYMPHOMA
     Dosage: 5100 MG, QD
     Route: 042
     Dates: start: 20081016
  3. VINCRISTINE [Suspect]
     Indication: NON-HODGKIN'S LYMPHOMA
     Dosage: 2 MG, QD
     Route: 042
     Dates: start: 20081016
  4. METHYLPREDNISOLONE 4MG TAB [Suspect]
     Indication: NON-HODGKIN'S LYMPHOMA
     Dosage: 100 MG, QD
     Route: 042
     Dates: start: 20081016
  5. METHYLPREDNISOLONE 4MG TAB [Suspect]
     Dosage: 100 MG, QD
     Route: 042
     Dates: start: 20091020
  6. CYCLOPHOSPHAMIDE [Suspect]
     Indication: NON-HODGKIN'S LYMPHOMA
     Dosage: 860 MG, QD
     Route: 042
     Dates: start: 20081017
  7. DOXORUBICIN [Suspect]
     Indication: NON-HODGKIN'S LYMPHOMA
     Dosage: 102 MG, QD
     Route: 042
     Dates: start: 20081017
  8. CYTARABINE [Suspect]
     Indication: NON-HODGKIN'S LYMPHOMA
     Dosage: 50 MG, QD
     Route: 037
     Dates: start: 20081017
  9. CYTARABINE [Suspect]
     Indication: NON-HODGKIN'S LYMPHOMA
     Dosage: 170 MG, QD
     Route: 042
     Dates: start: 20081129

REACTIONS (6)
  - ARRHYTHMIA [None]
  - CONDITION AGGRAVATED [None]
  - INFLAMMATION [None]
  - METASTASES TO MENINGES [None]
  - PULMONARY EMBOLISM [None]
  - SUDDEN DEATH [None]
